FAERS Safety Report 11536417 (Version 1)
Quarter: 2015Q3

REPORT INFORMATION
  Report Type: Spontaneous
  Country: BR (occurrence: BR)
  Receive Date: 20150922
  Receipt Date: 20150922
  Transmission Date: 20151125
  Serious: Yes (Life-Threatening, Hospitalization)
  Sender: FDA-Public Use
  Company Number: BR-PFIZER INC-2015310144

PATIENT
  Age: 58 Year
  Sex: Female
  Weight: 75 kg

DRUGS (3)
  1. LYRICA [Suspect]
     Active Substance: PREGABALIN
     Indication: INTERVERTEBRAL DISC PROTRUSION
     Dosage: 1 CAPSULE OF STRENGTH 75 MG, AT NIGHT
     Route: 048
     Dates: start: 20150909, end: 201509
  2. LYRICA [Suspect]
     Active Substance: PREGABALIN
     Dosage: 75 MG, EVERY 12 HOURS
     Route: 048
     Dates: start: 201509
  3. OXYCONTIN [Suspect]
     Active Substance: OXYCODONE HYDROCHLORIDE
     Indication: INTERVERTEBRAL DISC PROTRUSION
     Dosage: 1 TABLET OF STRENGTH 10 MG EVERY 12 HOURS
     Route: 048
     Dates: start: 20150909

REACTIONS (5)
  - Diaphragmatic disorder [Unknown]
  - Swelling face [Not Recovered/Not Resolved]
  - Pain [Unknown]
  - Drug hypersensitivity [Unknown]
  - Lacrimation increased [Not Recovered/Not Resolved]

NARRATIVE: CASE EVENT DATE: 201509
